FAERS Safety Report 8283020-9 (Version None)
Quarter: 2012Q2

REPORT INFORMATION
  Report Type: 
  Country: None (occurrence: None)
  Receive Date: 20120413
  Receipt Date: 20120329
  Transmission Date: 20120825
  Serious: Yes (Other)
  Sender: FDA-Public Use
  Company Number: DE-ROCHE-1054196

PATIENT
  Age: 51 Year
  Sex: Female
  Weight: 91 kg

DRUGS (1)
  1. ACTEMRA [Suspect]
     Indication: RHEUMATOID ARTHRITIS
     Dosage: LAST DOSE ON: 23/FEB/2012
     Route: 042
     Dates: start: 20110630

REACTIONS (1)
  - HYPOTENSION [None]
